FAERS Safety Report 4801270-8 (Version None)
Quarter: 2005Q4

REPORT INFORMATION
  Report Type: 
  Country: None (occurrence: None)
  Receive Date: 20051017
  Receipt Date: 20050930
  Transmission Date: 20060501
  Serious: Yes (Life-Threatening, Hospitalization, Other)
  Sender: FDA-Public Use
  Company Number: US-MERCK-0510USA00485

PATIENT
  Sex: Female
  Weight: 55 kg

DRUGS (6)
  1. ZOCOR [Suspect]
     Indication: HYPERLIPIDAEMIA
     Route: 048
  2. BIAXIN [Concomitant]
     Indication: HELICOBACTER INFECTION
     Route: 065
  3. [THERAPY UNSPECIFIED] [Concomitant]
     Indication: HELICOBACTER INFECTION
     Route: 065
  4. ZETIA [Concomitant]
     Route: 048
  5. COZAAR [Concomitant]
     Route: 048
  6. FELODIPINE [Concomitant]
     Route: 065

REACTIONS (3)
  - HELICOBACTER INFECTION [None]
  - RENAL FAILURE ACUTE [None]
  - RHABDOMYOLYSIS [None]
